FAERS Safety Report 9856607 (Version 2)
Quarter: 2014Q1

REPORT INFORMATION
  Report Type: Spontaneous
  Country: US (occurrence: US)
  Receive Date: 20140130
  Receipt Date: 20140130
  Transmission Date: 20141002
  Serious: Yes (Other)
  Sender: FDA-Public Use
  Company Number: US-ENDO PHARMACEUTICALS INC.-FRVA20130024

PATIENT
  Age: 20 Year
  Sex: Male
  Weight: 92.62 kg

DRUGS (1)
  1. FROVA TABLETS 2.5MG [Suspect]
     Indication: MIGRAINE
     Route: 048
     Dates: start: 20130918, end: 20130918

REACTIONS (3)
  - Infectious mononucleosis [Unknown]
  - Hypoaesthesia [Recovered/Resolved]
  - Drug ineffective [Recovered/Resolved]
